FAERS Safety Report 22256527 (Version 1)
Quarter: 2023Q2

REPORT INFORMATION
  Report Type: Spontaneous
  Country: US (occurrence: US)
  Receive Date: 20230426
  Receipt Date: 20230426
  Transmission Date: 20230721
  Serious: No
  Sender: FDA-Public Use
  Company Number: US-SA-SAC20230424001413

PATIENT
  Sex: Female

DRUGS (1)
  1. DUPILUMAB [Suspect]
     Active Substance: DUPILUMAB
     Dosage: UNK
     Route: 058

REACTIONS (5)
  - Hand dermatitis [Unknown]
  - Vomiting [Unknown]
  - Pain in extremity [Unknown]
  - Mastocytosis [Unknown]
  - Dermatitis atopic [Unknown]
